FAERS Safety Report 13633194 (Version 1)
Quarter: 2017Q2

REPORT INFORMATION
  Report Type: Spontaneous
  Country: US (occurrence: US)
  Receive Date: 20170531
  Receipt Date: 20170531
  Transmission Date: 20170830
  Serious: No
  Sender: FDA-Public Use
  Company Number: US-ASTELLAS-1517948

PATIENT
  Sex: Female

DRUGS (9)
  1. HYDROCHLOROTHIAZIDE. [Concomitant]
     Active Substance: HYDROCHLOROTHIAZIDE
  2. ASPIRIN. [Concomitant]
     Active Substance: ASPIRIN
  3. TARCEVA [Suspect]
     Active Substance: ERLOTINIB HYDROCHLORIDE
     Indication: LUNG NEOPLASM MALIGNANT
     Route: 048
     Dates: start: 20141026
  4. SIMVASTATIN. [Concomitant]
     Active Substance: SIMVASTATIN
  5. AMLODIPINE [Concomitant]
     Active Substance: AMLODIPINE BESYLATE
  6. ESZOPICLONE. [Concomitant]
     Active Substance: ESZOPICLONE
  7. ATENOLOL. [Concomitant]
     Active Substance: ATENOLOL
  8. METFORMIN [Concomitant]
     Active Substance: METFORMIN HYDROCHLORIDE
     Route: 065
  9. TRAVATAN [Concomitant]
     Active Substance: TRAVOPROST

REACTIONS (5)
  - Rhinorrhoea [Not Recovered/Not Resolved]
  - Cough [Unknown]
  - Abdominal discomfort [Unknown]
  - Diarrhoea [Unknown]
  - Onychoclasis [Unknown]
